FAERS Safety Report 7040985-0 (Version None)
Quarter: 2010Q4

REPORT INFORMATION
  Report Type: 
  Country: None (occurrence: None)
  Receive Date: 20101013
  Receipt Date: 20100412
  Transmission Date: 20110411
  Serious: Yes (Other)
  Sender: FDA-Public Use
  Company Number: US-ASTRAZENECA-2009UW18863

PATIENT
  Age: 421 Month
  Sex: Male

DRUGS (1)
  1. SEROQUEL [Suspect]
     Dosage: 100-400 MG
     Route: 048
     Dates: start: 20030626, end: 20030716

REACTIONS (3)
  - DIABETIC FOOT [None]
  - ERECTILE DYSFUNCTION [None]
  - TYPE 2 DIABETES MELLITUS [None]
